FAERS Safety Report 8312082-5 (Version None)
Quarter: 2012Q2

REPORT INFORMATION
  Report Type: 
  Country: None (occurrence: None)
  Receive Date: 20120425
  Receipt Date: 20120213
  Transmission Date: 20120825
  Serious: Yes (Other)
  Sender: FDA-Public Use
  Company Number: US-MYLANLABS-2012S1003192

PATIENT

DRUGS (1)
  1. PAROXETINE HCL [Suspect]

REACTIONS (1)
  - SEROTONIN SYNDROME [None]
